FAERS Safety Report 8341356 (Version 2)
Quarter: 2013Q2

REPORT INFORMATION
  Report Type: Spontaneous
  Country: US (occurrence: None)
  Receive Date: 20111202
  Receipt Date: 20121203
  Transmission Date: 20140414
  Serious: Yes (Hospitalization, Other)
  Sender: FDA-Public Use
  Company Number: 2010SP055017

PATIENT
  Age: 21 Year
  Sex: Female
  Weight: 49 kg

DRUGS (1)
  1. NUVARING [Suspect]
     Indication: PRODUCT USED FOR UNKNOWN INDICATION
     Dates: start: 200907, end: 200912

REACTIONS (10)
  - PULMONARY EMBOLISM [None]
  - DEEP VEIN THROMBOSIS [None]
  - MENTAL DISORDER [None]
  - EMOTIONAL DISORDER [None]
  - SCIATICA [None]
  - DEPRESSION [None]
  - URINARY TRACT INFECTION [None]
  - COGNITIVE DISORDER [None]
  - Pulmonary infarction [None]
  - Urinary tract infection [None]
